FAERS Safety Report 4959073-X (Version None)
Quarter: 2006Q1

REPORT INFORMATION
  Report Type: 
  Country: None (occurrence: None)
  Receive Date: 20060328
  Receipt Date: 20060314
  Transmission Date: 20060701
  Serious: Yes (Other)
  Sender: FDA-Public Use
  Company Number: 200611119BCC

PATIENT
  Age: 3 Year
  Sex: Female

DRUGS (1)
  1. RID MOUSSE [Suspect]
     Indication: LICE INFESTATION
     Dates: start: 20060201

REACTIONS (1)
  - CYANOSIS [None]
